FAERS Safety Report 8806767 (Version 2)
Quarter: 2012Q4

REPORT INFORMATION
  Report Type: 
  Country: US (occurrence: US)
  Receive Date: 20120925
  Receipt Date: 20121102
  Transmission Date: 20130627
  Serious: Yes (Other)
  Sender: FDA-Public Use
  Company Number: US-ASTRAZENECA-2012SE71853

PATIENT
  Age: 84 Year
  Sex: Male

DRUGS (1)
  1. TOPROL XL [Suspect]
     Route: 048

REACTIONS (5)
  - Fall [Unknown]
  - Pelvic fracture [Unknown]
  - Arthritis [Unknown]
  - Hypoacusis [Unknown]
  - Spinal column stenosis [Unknown]
